FAERS Safety Report 10195529 (Version 2)
Quarter: 2014Q2

REPORT INFORMATION
  Report Type: Spontaneous
  Country: BE (occurrence: BE)
  Receive Date: 20140527
  Receipt Date: 20140618
  Transmission Date: 20141212
  Serious: Yes (Hospitalization)
  Sender: FDA-Public Use
  Company Number: BE-US-EMD SERONO, INC.-7293188

PATIENT
  Age: 35 Year
  Sex: Female

DRUGS (1)
  1. REBIF [Suspect]
     Indication: MULTIPLE SCLEROSIS
     Dates: start: 2005, end: 201405

REACTIONS (4)
  - Coma [Recovering/Resolving]
  - Renal failure [Recovering/Resolving]
  - Epilepsy [Recovering/Resolving]
  - Hypertension [Recovering/Resolving]
